FAERS Safety Report 14100400 (Version 1)
Quarter: 2017Q4

REPORT INFORMATION
  Report Type: Spontaneous
  Country: US (occurrence: US)
  Receive Date: 20171017
  Receipt Date: 20171017
  Transmission Date: 20180321
  Serious: No
  Sender: FDA-Public Use
  Company Number: US-THE RITEDOSE CORPORATION-2017RIT000226

PATIENT

DRUGS (1)
  1. LEVALBUTEROL. [Suspect]
     Active Substance: LEVALBUTEROL
     Indication: CHRONIC OBSTRUCTIVE PULMONARY DISEASE
     Dosage: 1 VIAL, SINGLE
     Route: 055
     Dates: start: 201708, end: 201708

REACTIONS (2)
  - Product use in unapproved indication [Unknown]
  - Abdominal pain [Recovered/Resolved]
